FAERS Safety Report 9487136 (Version 2)
Quarter: 2013Q4

REPORT INFORMATION
  Report Type: Spontaneous
  Country: US (occurrence: US)
  Receive Date: 20130829
  Receipt Date: 20131002
  Transmission Date: 20140711
  Serious: No
  Sender: FDA-Public Use
  Company Number: US-BAYER-2013-102577

PATIENT
  Age: 50 Year
  Sex: Male

DRUGS (2)
  1. LEVITRA [Suspect]
     Indication: ERECTILE DYSFUNCTION
     Dosage: 100 MG, UNK
     Route: 048
  2. TESTOSTERONE [Concomitant]
     Indication: HYPOGONADISM

REACTIONS (4)
  - Headache [None]
  - Flushing [None]
  - Drug ineffective [None]
  - Suspected counterfeit product [None]
